FAERS Safety Report 10807205 (Version 1)
Quarter: 2015Q1

REPORT INFORMATION
  Report Type: Report from Study
  Country: US (occurrence: US)
  Receive Date: 20150217
  Receipt Date: 20150217
  Transmission Date: 20150721
  Serious: No
  Sender: FDA-Public Use
  Company Number: US-ABBVIE-14K-163-1263468-00

PATIENT
  Age: 27 Year
  Sex: Female
  Weight: 53.12 kg

DRUGS (4)
  1. HUMIRA [Suspect]
     Active Substance: ADALIMUMAB
     Dates: start: 201406, end: 201406
  2. HUMIRA [Suspect]
     Active Substance: ADALIMUMAB
     Indication: COLITIS ULCERATIVE
     Dates: start: 201406, end: 201406
  3. HUMIRA [Suspect]
     Active Substance: ADALIMUMAB
     Dates: start: 201407
  4. ANTIDEPRESSANTS [Concomitant]
     Active Substance: UNSPECIFIED INGREDIENT
     Indication: DEPRESSION

REACTIONS (3)
  - Device issue [Recovered/Resolved]
  - Injection site pain [Not Recovered/Not Resolved]
  - Incorrect dose administered [Unknown]

NARRATIVE: CASE EVENT DATE: 201406
